FAERS Safety Report 15948905 (Version 1)
Quarter: 2019Q1

REPORT INFORMATION
  Report Type: Spontaneous
  Country: TR (occurrence: TR)
  Receive Date: 20190212
  Receipt Date: 20190212
  Transmission Date: 20190417
  Serious: Yes (Hospitalization, Other)
  Sender: FDA-Public Use
  Company Number: TR-ACCORD-106319

PATIENT
  Age: 4 Year
  Sex: Male

DRUGS (1)
  1. METHOTREXATE. [Suspect]
     Active Substance: METHOTREXATE
     Indication: ACUTE LYMPHOCYTIC LEUKAEMIA
     Dosage: 120 MG, HD-MTX, 1 G/M2
     Route: 037

REACTIONS (5)
  - Overdose [Unknown]
  - Medication error [Unknown]
  - Headache [Unknown]
  - Hypertonia [Unknown]
  - Anxiety [Unknown]
